FAERS Safety Report 4665345-9 (Version None)
Quarter: 2005Q2

REPORT INFORMATION
  Report Type: 
  Country: None (occurrence: None)
  Receive Date: 20050517
  Receipt Date: 20050215
  Transmission Date: 20051028
  Serious: No
  Sender: FDA-Public Use
  Company Number: S05-USA-00799-01

PATIENT
  Age: 78 Year
  Sex: Female

DRUGS (4)
  1. NAMENDA [Suspect]
     Indication: AMNESIA
     Dosage: 5 MG BID PO
     Route: 048
     Dates: start: 20050201, end: 20050207
  2. NAMENDA [Suspect]
     Indication: AMNESIA
     Dosage: 5 MG QD PO
     Route: 048
     Dates: start: 20040125, end: 20050131
  3. NAMENDA [Suspect]
     Indication: AMNESIA
     Dosage: 15 MD QD PO
     Route: 048
     Dates: start: 20050208, end: 20050213
  4. MULTIPLE MEDICATIONS (NOS) [Concomitant]

REACTIONS (3)
  - CONFUSIONAL STATE [None]
  - DIZZINESS [None]
  - FATIGUE [None]
